FAERS Safety Report 8026558-1 (Version None)
Quarter: 2012Q1

REPORT INFORMATION
  Report Type: 
  Country: None (occurrence: None)
  Receive Date: 20120106
  Receipt Date: 20120104
  Transmission Date: 20120608
  Serious: Yes (Other)
  Sender: FDA-Public Use
  Company Number: IT-BIOGENIDEC-2011BI016977

PATIENT
  Age: 43 Year
  Sex: Female

DRUGS (7)
  1. DELORAZEPAM [Concomitant]
     Route: 048
  2. TYSABRI [Suspect]
     Route: 042
     Dates: start: 20110601
  3. ARIPIPRAZOLE [Concomitant]
     Route: 048
  4. PAROXETINE [Concomitant]
     Route: 048
  5. TYSABRI [Suspect]
     Indication: RELAPSING-REMITTING MULTIPLE SCLEROSIS
     Route: 042
     Dates: start: 20100112, end: 20110419
  6. MIRTAZAPINE [Concomitant]
     Route: 048
  7. LAMOTRIGINE [Concomitant]
     Route: 048

REACTIONS (1)
  - EXTRAPYRAMIDAL DISORDER [None]
